FAERS Safety Report 9411964 (Version 1)
Quarter: 2013Q3

REPORT INFORMATION
  Report Type: Report from Study
  Country: CA (occurrence: CA)
  Receive Date: 20130722
  Receipt Date: 20130722
  Transmission Date: 20140515
  Serious: Yes (Hospitalization)
  Sender: FDA-Public Use
  Company Number: CA-JNJFOC-20130712792

PATIENT
  Age: 67 Year
  Sex: Female
  Weight: 80 kg

DRUGS (11)
  1. REMICADE [Suspect]
     Indication: CROHN^S DISEASE
     Route: 042
     Dates: start: 20081208
  2. VITAMIN B 12 [Concomitant]
     Route: 030
  3. PAXIL [Concomitant]
     Route: 048
  4. METFORMIN [Concomitant]
     Route: 048
  5. SIMVASTIN [Concomitant]
     Route: 048
  6. DIOVAN [Concomitant]
     Route: 048
  7. PREVACID [Concomitant]
     Route: 048
  8. ASA [Concomitant]
     Route: 048
  9. EZETROL [Concomitant]
     Route: 048
  10. METOPROLOL [Concomitant]
     Route: 048
  11. HCTZ [Concomitant]
     Route: 048

REACTIONS (1)
  - Atrial fibrillation [Unknown]
